FAERS Safety Report 22971721 (Version 3)
Quarter: 2024Q1

REPORT INFORMATION
  Report Type: Spontaneous
  Country: US (occurrence: US)
  Receive Date: 20230922
  Receipt Date: 20240102
  Transmission Date: 20240410
  Serious: No
  Sender: FDA-Public Use
  Company Number: US-SA-2023SA263251

PATIENT
  Age: 37 Year
  Sex: Male

DRUGS (9)
  1. HYDROCORTISONE [Suspect]
     Active Substance: HYDROCORTISONE
     Indication: Graft versus host disease
     Dosage: 1 %
     Route: 061
  2. PREDNISONE [Suspect]
     Active Substance: PREDNISONE
     Indication: Chronic graft versus host disease
     Dosage: TAPERED BY 5 MG WEEKLY
     Route: 065
  3. PREDNISONE [Suspect]
     Active Substance: PREDNISONE
     Dosage: 0.5 MG/KG (50 MG, QD)
     Route: 065
  4. TACROLIMUS [Concomitant]
     Active Substance: TACROLIMUS
     Indication: Prophylaxis against graft versus host disease
     Dosage: GOAL 3-7NG/ML
     Route: 065
  5. TACROLIMUS [Concomitant]
     Active Substance: TACROLIMUS
     Dosage: {3-5 NG/ML
  6. TACROLIMUS [Concomitant]
     Active Substance: TACROLIMUS
     Dosage: INCREASED TO 3-7NG/ML
  7. SIROLIMUS [Concomitant]
     Active Substance: SIROLIMUS
     Indication: Prophylaxis against graft versus host disease
     Dosage: GOAL 8-14NG/ML
     Route: 065
  8. SIROLIMUS [Concomitant]
     Active Substance: SIROLIMUS
     Dosage: DECREASED TO 5-10 NG/ML
  9. SIROLIMUS [Concomitant]
     Active Substance: SIROLIMUS
     Dosage: INCREASED TO 8-14NG/ML

REACTIONS (2)
  - Treatment noncompliance [Unknown]
  - No adverse event [Unknown]
